FAERS Safety Report 25824303 (Version 1)
Quarter: 2025Q3

REPORT INFORMATION
  Report Type: Spontaneous
  Country: US (occurrence: None)
  Receive Date: 20250919
  Receipt Date: 20250919
  Transmission Date: 20251021
  Serious: Yes (Disabling)
  Sender: FDA-CTU
  Company Number: None

PATIENT
  Age: 39 Year
  Sex: Female
  Weight: 81 kg

DRUGS (2)
  1. ADDERALL [Suspect]
     Active Substance: AMPHETAMINE ASPARTATE\AMPHETAMINE SULFATE\DEXTROAMPHETAMINE SACCHARATE\DEXTROAMPHETAMINE SULFATE
  2. Adderall 30 mg BID [Concomitant]

REACTIONS (4)
  - Impaired quality of life [None]
  - Drug ineffective [None]
  - Impaired work ability [None]
  - Abnormal behaviour [None]

NARRATIVE: CASE EVENT DATE: 20210929
